FAERS Safety Report 5904282-6 (Version None)
Quarter: 2008Q4

REPORT INFORMATION
  Report Type: 
  Country: None (occurrence: None)
  Receive Date: 20081001
  Receipt Date: 20080627
  Transmission Date: 20090506
  Serious: No
  Sender: FDA-Public Use
  Company Number: US-BRISTOL-MYERS SQUIBB COMPANY-14194476

PATIENT
  Age: 61 Year
  Sex: Female

DRUGS (12)
  1. SPRYCEL [Suspect]
     Indication: CHRONIC MYELOID LEUKAEMIA
     Route: 048
     Dates: start: 20080423
  2. LASIX [Concomitant]
  3. ZOLOFT [Concomitant]
  4. EVISTA [Concomitant]
  5. GLUCOPHAGE [Concomitant]
  6. DARVOCET [Concomitant]
  7. COMPAZINE [Concomitant]
  8. SINGULAIR [Concomitant]
  9. XANAX [Concomitant]
  10. LOMOTIL [Concomitant]
  11. GLYBURIDE [Concomitant]
  12. ISONIAZID [Concomitant]

REACTIONS (2)
  - HAEMATEMESIS [None]
  - NAUSEA [None]
